FAERS Safety Report 7608574-4 (Version None)
Quarter: 2011Q3

REPORT INFORMATION
  Report Type: 
  Country: None (occurrence: None)
  Receive Date: 20110714
  Receipt Date: 20110704
  Transmission Date: 20111222
  Serious: Yes (Other)
  Sender: FDA-Public Use
  Company Number: CA-JNJFOC-20100808509

PATIENT
  Sex: Female
  Weight: 108 kg

DRUGS (11)
  1. IMURAN [Concomitant]
  2. LANTUS [Concomitant]
     Dosage: 80 UNITS IN AM.
  3. RELPAX [Concomitant]
  4. METHOTREXATE [Concomitant]
     Route: 048
  5. HUMALOG [Concomitant]
     Dosage: 20 UNITS PRIOR TO EACH MEAL
  6. REMICADE [Suspect]
     Indication: CROHN'S DISEASE
     Route: 042
     Dates: start: 20100210
  7. REMICADE [Suspect]
     Route: 042
     Dates: start: 20110531
  8. PLAQUENIL [Concomitant]
  9. REMICADE [Suspect]
     Route: 042
     Dates: start: 20100714
  10. PRILOSEC [Concomitant]
  11. FOLIC ACID [Concomitant]
     Route: 048

REACTIONS (1)
  - ENDOMETRIOSIS [None]
